FAERS Safety Report 4719615-6 (Version None)
Quarter: 2005Q3

REPORT INFORMATION
  Report Type: 
  Country: None (occurrence: None)
  Receive Date: 20050721
  Receipt Date: 20040413
  Transmission Date: 20060218
  Serious: No
  Sender: FDA-Public Use
  Company Number: US-GLAXOSMITHKLINE-A0508226A

PATIENT
  Sex: Female

DRUGS (5)
  1. AVANDIA [Suspect]
     Route: 048
     Dates: start: 20000101, end: 20020910
  2. PREVACID [Concomitant]
  3. DYAZIDE [Concomitant]
  4. DILACOR XR [Concomitant]
  5. ISOSORBIDE DINITRATE [Concomitant]

REACTIONS (1)
  - ADVERSE EVENT [None]
